FAERS Safety Report 4999815-0 (Version None)
Quarter: 2006Q2

REPORT INFORMATION
  Report Type: 
  Country: None (occurrence: None)
  Receive Date: 20060510
  Receipt Date: 20060510
  Transmission Date: 20061013
  Serious: No
  Sender: FDA-Public Use
  Company Number: None

PATIENT
  Sex: Male

DRUGS (4)
  1. CLONAZEPAM [Suspect]
     Dosage: ONE TABLET  THREE TIME DAILY PO
     Route: 048
     Dates: start: 20060131, end: 20060421
  2. CLONAZEPAM [Suspect]
  3. AMPHETAMINE SALTS [Concomitant]
  4. FLUTICASONE PROPIONATE [Concomitant]

REACTIONS (5)
  - DRY MOUTH [None]
  - DYSPHAGIA [None]
  - GINGIVAL SWELLING [None]
  - PHARMACEUTICAL PRODUCT COMPLAINT [None]
  - TONGUE COATED [None]
